FAERS Safety Report 25540367 (Version 1)
Quarter: 2025Q3

REPORT INFORMATION
  Report Type: Report from Study
  Country: KR (occurrence: KR)
  Receive Date: 20250710
  Receipt Date: 20250710
  Transmission Date: 20251020
  Serious: Yes (Hospitalization, Other)
  Sender: TAKEDA
  Company Number: KR-TAKEDA-2025TUS061257

PATIENT
  Age: 53 Year
  Sex: Female
  Weight: 65 kg

DRUGS (16)
  1. VEDOLIZUMAB [Suspect]
     Active Substance: VEDOLIZUMAB
     Indication: Colitis ulcerative
     Dates: start: 20220120, end: 20241008
  2. VEDOLIZUMAB [Suspect]
     Active Substance: VEDOLIZUMAB
     Indication: Crohn^s disease
     Dosage: 108 MILLIGRAM, QD
     Dates: start: 20241203, end: 20250701
  3. DIABEX [Concomitant]
     Active Substance: METFORMIN HYDROCHLORIDE
     Dosage: 250 MILLIGRAM, QD
     Dates: start: 2016
  4. Glupen [Concomitant]
     Dosage: UNK UNK, QD
     Dates: start: 2016
  5. GEMIGLIPTIN\METFORMIN [Concomitant]
     Active Substance: GEMIGLIPTIN\METFORMIN
     Dosage: UNK UNK, QD
     Dates: start: 2016
  6. ISONIAZID [Concomitant]
     Active Substance: ISONIAZID
     Indication: Adverse event
     Dosage: UNK UNK, QD
     Dates: start: 20250613
  7. RIFAMPIN [Concomitant]
     Active Substance: RIFAMPIN
     Indication: Adverse event
     Dosage: 600 MILLIGRAM, QD
     Dates: start: 20250613
  8. MYAMBUTOL [Concomitant]
     Active Substance: ETHAMBUTOL HYDROCHLORIDE
     Indication: Adverse event
     Dosage: UNK UNK, QD
     Dates: start: 20250613
  9. PYRAZINAMIDE [Concomitant]
     Active Substance: PYRAZINAMIDE
     Indication: Adverse event
     Dosage: UNK UNK, QD
     Dates: start: 20250613
  10. PYRIDOXINE [Concomitant]
     Active Substance: PYRIDOXINE
     Indication: Adverse event
     Dosage: 50 MILLIGRAM, QD
     Dates: start: 20250613
  11. SULFAMETHOXAZOLE\TRIMETHOPRIM [Concomitant]
     Active Substance: SULFAMETHOXAZOLE\TRIMETHOPRIM
     Indication: Adverse event
     Dosage: UNK UNK, QD
     Dates: start: 20250613
  12. Peniramin [Concomitant]
     Indication: Adverse event
     Dosage: 2 MILLIGRAM, TID
  13. Moveloxin [Concomitant]
     Indication: Adverse event
  14. DIETARY SUPPLEMENT\HERBALS\MILK THISTLE [Concomitant]
     Active Substance: MILK THISTLE
     Indication: Adverse event
     Dosage: UNK UNK, BID
     Dates: start: 20250701
  15. ACTIFED (PSEUDOEPHEDRINE HYDROCHLORIDE\TRIPROLIDINE HYDROCHLORIDE) [Concomitant]
     Active Substance: PSEUDOEPHEDRINE HYDROCHLORIDE\TRIPROLIDINE HYDROCHLORIDE
     Indication: Adverse event
     Dosage: UNK UNK, TID
     Dates: start: 20250611
  16. MESALAMINE [Concomitant]
     Active Substance: MESALAMINE
     Dosage: UNK UNK, QD
     Dates: start: 2018

REACTIONS (1)
  - Pulmonary tuberculosis [Recovering/Resolving]

NARRATIVE: CASE EVENT DATE: 20250609
